FAERS Safety Report 6261747-8 (Version None)
Quarter: 2009Q3

REPORT INFORMATION
  Report Type: 
  Country: None (occurrence: None)
  Receive Date: 20090707
  Receipt Date: 20090707
  Transmission Date: 20100115
  Serious: Yes (Life-Threatening, Hospitalization, Other)
  Sender: FDA-Public Use
  Company Number: None

PATIENT
  Age: 26 Year
  Sex: Female
  Weight: 97.5234 kg

DRUGS (2)
  1. ZOLOFT [Suspect]
     Indication: POSTPARTUM DEPRESSION
     Dosage: 50 MG, 100 MG, 150 MG 1 X PER DAY PO
     Route: 048
     Dates: start: 20040714, end: 20041121
  2. ZOLOFT [Suspect]
     Indication: PROPHYLAXIS
     Dosage: 50 MG, 100 MG, 150 MG 1 X PER DAY PO
     Route: 048
     Dates: start: 20040714, end: 20041121

REACTIONS (13)
  - BACK DISORDER [None]
  - BREAST FEEDING [None]
  - DRUG INEFFECTIVE [None]
  - FIBROMYALGIA [None]
  - HALLUCINATION, VISUAL [None]
  - HOMICIDAL IDEATION [None]
  - HYPOGLYCAEMIA [None]
  - MENTAL DISORDER [None]
  - MUSCLE DISORDER [None]
  - NIGHTMARE [None]
  - SUICIDAL IDEATION [None]
  - THYROIDITIS [None]
  - WEIGHT INCREASED [None]
